FAERS Safety Report 5392705-3 (Version None)
Quarter: 2007Q3

REPORT INFORMATION
  Report Type: 
  Country: None (occurrence: None)
  Receive Date: 20070720
  Receipt Date: 20070710
  Transmission Date: 20080115
  Serious: Yes (Other)
  Sender: FDA-Public Use
  Company Number: DE-PFIZER INC-2007056717

PATIENT
  Age: 32 Year
  Sex: Male

DRUGS (3)
  1. CLINDAMYCIN HYDROCHLORIDE [Suspect]
     Indication: FURUNCLE
     Dosage: DAILY DOSE:300MG
  2. FLUVOXAMINE MALEATE [Interacting]
     Indication: DEPRESSION
     Dosage: DAILY DOSE:100MG
     Dates: start: 20050101, end: 20050101
  3. FLUVOXAMINE MALEATE [Interacting]
     Dosage: DAILY DOSE:200MG
     Dates: start: 20050801

REACTIONS (2)
  - DRUG INTERACTION [None]
  - DYSKINESIA [None]
